FAERS Safety Report 8535216-6 (Version None)
Quarter: 2012Q3

REPORT INFORMATION
  Report Type: 
  Country: None (occurrence: None)
  Receive Date: 20120724
  Receipt Date: 20120709
  Transmission Date: 20120928
  Serious: No
  Sender: FDA-Public Use
  Company Number: US-ROXANE LABORATORIES, INC.-2012-RO-01546RO

PATIENT
  Sex: Female

DRUGS (3)
  1. I-KOOL [Concomitant]
     Indication: MENOPAUSE
  2. METHADONE HCL [Suspect]
     Indication: COMPLEX REGIONAL PAIN SYNDROME
     Dosage: 40 MG
     Route: 048
  3. LISINOPRIL [Concomitant]
     Indication: HYPERTENSION

REACTIONS (2)
  - WITHDRAWAL SYNDROME [None]
  - PRODUCT QUALITY ISSUE [None]
